FAERS Safety Report 5925254-1 (Version None)
Quarter: 2008Q4

REPORT INFORMATION
  Report Type: 
  Country: None (occurrence: None)
  Receive Date: 20081020
  Receipt Date: 20081020
  Transmission Date: 20090506
  Serious: No
  Sender: FDA-Public Use
  Company Number: None

PATIENT
  Age: 57 Year
  Sex: Female
  Weight: 74.3899 kg

DRUGS (1)
  1. LEVAQUIN [Suspect]
     Indication: ABDOMINAL PAIN
     Dosage: ONE TABLET DAILY
     Dates: start: 20081008, end: 20081011

REACTIONS (1)
  - TENDON PAIN [None]
